FAERS Safety Report 6493649-6 (Version None)
Quarter: 2009Q4

REPORT INFORMATION
  Report Type: 
  Country: None (occurrence: None)
  Receive Date: 20091214
  Receipt Date: 20091208
  Transmission Date: 20100525
  Serious: Yes (Hospitalization)
  Sender: FDA-Public Use
  Company Number: A0834849A

PATIENT
  Age: 46 Year
  Sex: Male

DRUGS (1)
  1. AVANDIA [Suspect]
     Dosage: 4MG TWICE PER DAY
     Route: 065
     Dates: start: 19971201, end: 20081218

REACTIONS (3)
  - CARDIAC FAILURE CONGESTIVE [None]
  - CEREBROVASCULAR ACCIDENT [None]
  - MYOCARDIAL INFARCTION [None]
